FAERS Safety Report 9501777 (Version 4)
Quarter: 2013Q4

REPORT INFORMATION
  Report Type: Report from Study
  Country: BR (occurrence: BR)
  Receive Date: 20130905
  Receipt Date: 20131018
  Transmission Date: 20140711
  Serious: Yes (Other)
  Sender: FDA-Public Use
  Company Number: PHHO2013BR008407

PATIENT
  Age: 32 Year
  Sex: Male
  Weight: 77.7 kg

DRUGS (2)
  1. CERTICAN [Suspect]
     Indication: RENAL TRANSPLANT
     Dosage: 1.5 MG, BID
     Route: 048
     Dates: start: 20130411, end: 20130618
  2. THYMOGLOBULIN [Suspect]
     Indication: RENAL TRANSPLANT
     Dosage: 250 MG, ONCE/SINGLE
     Route: 042
     Dates: start: 20130411, end: 20130411

REACTIONS (2)
  - Focal segmental glomerulosclerosis [Recovered/Resolved with Sequelae]
  - Cytomegalovirus viraemia [Recovered/Resolved]
